FAERS Safety Report 9549234 (Version 1)
Quarter: 2013Q2

REPORT INFORMATION
  Report Type: Spontaneous
  Country: US (occurrence: None)
  Receive Date: 20130612
  Receipt Date: 20130612
  Transmission Date: 20140414
  Serious: Yes (Other)
  Sender: FDA-Public Use
  Company Number: E7389-03704-SPO-US

PATIENT
  Age: 50 Year
  Sex: Female

DRUGS (3)
  1. HALAVEN [Suspect]
     Indication: BREAST CANCER METASTATIC
     Dosage: 2 MG, 2 IN 21 D, INTRAVENOUS INFUSION
     Route: 042
     Dates: start: 20130328, end: 20130328
  2. ALOXI (PALONOSETRON HYDROCHLORIDE) [Concomitant]
  3. DECADRON (DEXAMETHASONE) [Concomitant]

REACTIONS (2)
  - White blood cell count decreased [None]
  - Neuropathy peripheral [None]
